FAERS Safety Report 25707614 (Version 1)
Quarter: 2025Q3

REPORT INFORMATION
  Report Type: Spontaneous
  Country: US (occurrence: US)
  Receive Date: 20250820
  Receipt Date: 20250820
  Transmission Date: 20251020
  Serious: Yes (Hospitalization, Other)
  Sender: AMGEN
  Company Number: US-AMGEN-USASP2025161397

PATIENT

DRUGS (2)
  1. USTEKINUMAB [Suspect]
     Active Substance: USTEKINUMAB
     Indication: Colitis ulcerative
     Route: 065
  2. TOFACITINIB [Suspect]
     Active Substance: TOFACITINIB
     Indication: Colitis ulcerative
     Route: 065

REACTIONS (10)
  - Infection [Unknown]
  - Deep vein thrombosis [Unknown]
  - Neoplasm malignant [Unknown]
  - Colitis ulcerative [Unknown]
  - Adenocarcinoma of colon [Unknown]
  - Skin cancer [Unknown]
  - Cardiovascular disorder [Unknown]
  - Rheumatic disorder [Unknown]
  - Drug ineffective [Unknown]
  - Herpes zoster [Unknown]
